FAERS Safety Report 6241995-3 (Version None)
Quarter: 2009Q2

REPORT INFORMATION
  Report Type: 
  Country: None (occurrence: None)
  Receive Date: 20090622
  Receipt Date: 20090608
  Transmission Date: 20091009
  Serious: Yes (Death, Other)
  Sender: FDA-Public Use
  Company Number: 1-18569497

PATIENT
  Sex: Female
  Weight: 40.8237 kg

DRUGS (1)
  1. FENTANYL [Suspect]
     Indication: PAIN MANAGEMENT
     Dosage: 25 MCG, 1 PATCH, Q72H, TRANSDERMAL
     Route: 062
     Dates: start: 20090424, end: 20090427

REACTIONS (8)
  - ABNORMAL BEHAVIOUR [None]
  - AMNESIA [None]
  - CONVULSION [None]
  - DECREASED APPETITE [None]
  - DYSPHAGIA [None]
  - EATING DISORDER [None]
  - HYPERSOMNIA [None]
  - LETHARGY [None]
